FAERS Safety Report 6196033-8 (Version None)
Quarter: 2009Q2

REPORT INFORMATION
  Report Type: 
  Country: None (occurrence: None)
  Receive Date: 20090520
  Receipt Date: 20040130
  Transmission Date: 20091009
  Serious: Yes (Hospitalization)
  Sender: FDA-Public Use
  Company Number: NL-ROCHE-601917

PATIENT
  Sex: Male

DRUGS (6)
  1. CAPECITABINE [Suspect]
     Dosage: DOSE AS PER PROTOCOL:1000 MG/M2 GIVEN TWICE DAILY ON DAY 1-14 PER THREE WEEKS
     Route: 048
     Dates: start: 20031230, end: 20040113
  2. IRINOTECAN HCL [Suspect]
     Route: 042
     Dates: start: 20031230
  3. HEPARIN [Concomitant]
     Route: 042
     Dates: start: 20040107
  4. ACETAMINOPHEN [Concomitant]
     Dosage: DOSE : 4 DD 1000 MG
     Dates: start: 20040107
  5. DORMICUM [Concomitant]
     Dosage: DOSE : 75 MG X 1
  6. ZOFRAN [Concomitant]
     Dosage: DOSE: 2DD 8 MG

REACTIONS (2)
  - ARTERIAL OCCLUSIVE DISEASE [None]
  - THROMBOSIS [None]
